FAERS Safety Report 8601227-5 (Version None)
Quarter: 2012Q3

REPORT INFORMATION
  Report Type: 
  Country: None (occurrence: None)
  Receive Date: 20120817
  Receipt Date: 20120810
  Transmission Date: 20120928
  Serious: Yes (Other)
  Sender: FDA-Public Use
  Company Number: PHHY2011US64633

PATIENT
  Sex: Male

DRUGS (10)
  1. MIRALAX [Concomitant]
     Route: 065
  2. AFINITOR [Suspect]
     Indication: TUBEROUS SCLEROSIS
     Dosage: 2.5 MG, DAILY
     Route: 048
     Dates: start: 20110713
  3. ZONEGRAN [Concomitant]
  4. TOPAMAX [Concomitant]
     Route: 065
  5. VIGABATRIN [Concomitant]
  6. PHENOBARBITAL TAB [Concomitant]
     Dosage: UNK
     Route: 065
  7. TAURINE [Concomitant]
     Dosage: UNK
     Route: 065
  8. AFINITOR [Suspect]
     Dosage: 5 MG
     Route: 048
     Dates: start: 20110713
  9. SABRIL [Concomitant]
     Dosage: UNK
     Route: 065
  10. VITAMIN B6 [Concomitant]
     Dosage: UNK
     Route: 065

REACTIONS (11)
  - INFANTILE SPASMS [None]
  - SOMNOLENCE [None]
  - ELECTROLYTE IMBALANCE [None]
  - COMPLEX PARTIAL SEIZURES [None]
  - DIARRHOEA [None]
  - VOMITING [None]
  - COMA [None]
  - OCULAR NEOPLASM [None]
  - RHINORRHOEA [None]
  - EAR INFECTION [None]
  - COUGH [None]
